FAERS Safety Report 8282744-7 (Version None)
Quarter: 2012Q2

REPORT INFORMATION
  Report Type: 
  Country: None (occurrence: None)
  Receive Date: 20120413
  Receipt Date: 20120403
  Transmission Date: 20120825
  Serious: Yes (Other)
  Sender: FDA-Public Use
  Company Number: GB-ROCHE-1047868

PATIENT
  Sex: Male
  Weight: 47.6 kg

DRUGS (5)
  1. DISULFIRAM [Concomitant]
     Dosage: DAILY
     Route: 048
  2. PEGASYS [Suspect]
     Indication: HEPATITIS C
     Route: 058
     Dates: start: 20111026, end: 20120308
  3. METHADONE HCL [Concomitant]
     Indication: DRUG DEPENDENCE
     Dosage: 40MLS, DAILY
     Route: 048
  4. RIBAVIRIN [Concomitant]
     Indication: HEPATITIS C
     Route: 048
     Dates: start: 20120222
  5. RIBAVIRIN [Concomitant]
     Route: 048
     Dates: start: 20111026, end: 20120308

REACTIONS (7)
  - PARANOIA [None]
  - ILL-DEFINED DISORDER [None]
  - AGITATION [None]
  - ANAEMIA [None]
  - FALL [None]
  - PSYCHOTIC DISORDER [None]
  - AGGRESSION [None]
